FAERS Safety Report 18194367 (Version 1)
Quarter: 2020Q3

REPORT INFORMATION
  Report Type: Spontaneous
  Country: US (occurrence: US)
  Receive Date: 20200825
  Receipt Date: 20200825
  Transmission Date: 20201103
  Serious: Yes (Other)
  Sender: FDA-Public Use
  Company Number: NVSC2020US234475

PATIENT
  Age: 15 Year
  Sex: Male

DRUGS (1)
  1. TRAMETINIB [Suspect]
     Active Substance: TRAMETINIB
     Indication: GLIOMA
     Dosage: 0.025 MG/KG, QD
     Route: 065

REACTIONS (3)
  - Skin toxicity [Unknown]
  - Product use in unapproved indication [Unknown]
  - Tumour haemorrhage [Unknown]
